FAERS Safety Report 8891722 (Version 1)
Quarter: 2012Q4

REPORT INFORMATION
  Report Type: Spontaneous
  Country: US (occurrence: None)
  Receive Date: 20121031
  Receipt Date: 20121031
  Transmission Date: 20130627
  Serious: Yes (Other)
  Sender: FDA-Public Use
  Company Number: DKLU1085416

PATIENT
  Age: 39 Year
  Sex: Male

DRUGS (6)
  1. ONFI [Suspect]
     Dosage: 15 mg milligram(s), 1 in 1 D
     Dates: start: 2012
  2. ONFI [Suspect]
     Dosage: 10 mg milligram(s), AM
     Dates: start: 201209, end: 20121004
  3. ONFI [Suspect]
     Dosage: 15 mg milligram(s), PM
     Dates: start: 201209, end: 20121004
  4. KEPPRA (LEVETIRACETAM) [Concomitant]
  5. VIMPAT (LACOSAMIDE) [Concomitant]
  6. TEGRETOL XR (CARBAMAZEPINE) [Concomitant]

REACTIONS (4)
  - Suicide attempt [None]
  - Suicidal ideation [None]
  - Depression [None]
  - Personality change [None]
